FAERS Safety Report 16736603 (Version 1)
Quarter: 2019Q3

REPORT INFORMATION
  Report Type: Spontaneous
  Country: US (occurrence: US)
  Receive Date: 20190823
  Receipt Date: 20190823
  Transmission Date: 20191005
  Serious: No
  Sender: FDA-Public Use
  Company Number: US-BIOCODEX SA-201900799

PATIENT
  Sex: Female

DRUGS (1)
  1. DIACOMIT [Suspect]
     Active Substance: STIRIPENTOL
     Indication: PRODUCT USED FOR UNKNOWN INDICATION
     Dosage: ONE SACHET OF 500MG TWICE A DAY
     Route: 048
     Dates: start: 20190522

REACTIONS (1)
  - Constipation [Unknown]
